FAERS Safety Report 5406144-X (Version None)
Quarter: 2007Q3

REPORT INFORMATION
  Report Type: 
  Country: None (occurrence: None)
  Receive Date: 20070802
  Receipt Date: 20070802
  Transmission Date: 20080115
  Serious: Yes (Other)
  Sender: FDA-Public Use
  Company Number: None

PATIENT
  Sex: Female

DRUGS (5)
  1. REVLIMID [Suspect]
     Indication: MULTIPLE MYELOMA
     Dosage: 25MG  DAILY X21D/28D  PO
     Route: 048
     Dates: start: 20070702, end: 20070719
  2. HYDROMORPHONE HCL [Concomitant]
  3. FOSAMAX PLUS D [Concomitant]
  4. ENDOCET [Concomitant]
  5. IBUPROFEN [Concomitant]

REACTIONS (5)
  - FATIGUE [None]
  - FEELING OF BODY TEMPERATURE CHANGE [None]
  - INFLUENZA LIKE ILLNESS [None]
  - MYALGIA [None]
  - NEUTROPHIL COUNT DECREASED [None]
